FAERS Safety Report 7351796-0 (Version None)
Quarter: 2011Q1

REPORT INFORMATION
  Report Type: 
  Country: None (occurrence: None)
  Receive Date: 20110315
  Receipt Date: 20101124
  Transmission Date: 20110831
  Serious: Yes (Hospitalization, Disabling, Other)
  Sender: FDA-Public Use
  Company Number: US-BAYER-201021275NA

PATIENT
  Sex: Female
  Weight: 59.091 kg

DRUGS (21)
  1. IBUPROFEN [Concomitant]
     Route: 065
  2. IRON [Concomitant]
     Dosage: 50 MG (DAILY DOSE), QD, UNKNOWN
     Route: 065
     Dates: start: 20080101
  3. ENOXAPARIN [Concomitant]
     Dosage: 60 MG/0.6 ML SOLUTION)=
     Route: 058
  4. HYOSCYAMINE [Concomitant]
  5. YAZ [Suspect]
     Indication: PRODUCT USED FOR UNKNOWN INDICATION
     Route: 048
     Dates: start: 20071001, end: 20080301
  6. LIBRAX [Concomitant]
     Indication: IRRITABLE BOWEL SYNDROME
     Dosage: UNK UNK, TID
     Route: 065
     Dates: start: 20090101, end: 20100101
  7. HYDROMORPHONE HCL [Concomitant]
     Dosage: 24 MG (DAILY DOSE), Q4HR, INTRAVENOUS
     Route: 042
  8. MIRALAX [Concomitant]
     Route: 065
  9. CARBONYL IRON [IRON PENTACARBONYL] [Concomitant]
     Route: 048
  10. ACETAMINOPHEN W/ CODEINE [Concomitant]
     Route: 065
  11. OXYCODONE HCL [Concomitant]
     Indication: PAIN
     Dosage: AS NEEDED, 10 MG PER MOUTH.
     Route: 048
  12. SENNA [Concomitant]
     Route: 065
  13. ACETAMINOPHEN [Concomitant]
     Route: 065
  14. FERROUS SULFATE TAB [Concomitant]
  15. PANTOPRAZOLE [Concomitant]
     Route: 065
  16. MAGNESIUM SULFATE [Concomitant]
     Route: 042
  17. YASMIN [Suspect]
     Indication: PAIN
     Route: 048
     Dates: start: 20071201, end: 20080101
  18. GABAPENTIN [Concomitant]
     Indication: PAIN
     Route: 065
     Dates: start: 20090101
  19. BENADRYL [Concomitant]
  20. MOTRIN [Concomitant]
     Route: 042
  21. CODEINE [Concomitant]
     Route: 065

REACTIONS (6)
  - DEEP VEIN THROMBOSIS [None]
  - OEDEMA PERIPHERAL [None]
  - POST THROMBOTIC SYNDROME [None]
  - PAIN IN EXTREMITY [None]
  - MIGRAINE [None]
  - ABASIA [None]
